FAERS Safety Report 4741693-9 (Version None)
Quarter: 2005Q3

REPORT INFORMATION
  Report Type: 
  Country: None (occurrence: None)
  Receive Date: 20050801
  Receipt Date: 20050624
  Transmission Date: 20060218
  Serious: No
  Sender: FDA-Public Use
  Company Number: 2005PV000112

PATIENT
  Age: 56 Year
  Sex: Female
  Weight: 70.7611 kg

DRUGS (8)
  1. BYETTA [Suspect]
     Indication: DIABETES MELLITUS NON-INSULIN-DEPENDENT
     Dosage: 5 UG; BID; SC
     Route: 058
     Dates: start: 20050623
  2. GLUCOVANCE [Concomitant]
  3. ACTOS [Concomitant]
  4. SYNTHROID [Concomitant]
  5. ZIAC [Concomitant]
  6. PREMARIN [Concomitant]
  7. ELAVIL [Concomitant]
  8. LANTUS [Concomitant]

REACTIONS (4)
  - BLOOD GLUCOSE INCREASED [None]
  - DIZZINESS [None]
  - FEELING ABNORMAL [None]
  - PARAESTHESIA [None]
